FAERS Safety Report 24583253 (Version 4)
Quarter: 2024Q4

REPORT INFORMATION
  Report Type: Report from Study
  Country: AR (occurrence: AR)
  Receive Date: 20241106
  Receipt Date: 20241213
  Transmission Date: 20250115
  Serious: Yes (Hospitalization, Other)
  Sender: ROCHE
  Company Number: AR-ROCHE-10000123782

PATIENT
  Age: 70 Year
  Sex: Female

DRUGS (3)
  1. SATRALIZUMAB [Suspect]
     Active Substance: SATRALIZUMAB
     Indication: Neuromyelitis optica spectrum disorder
     Dosage: DOSE IS UNKNOWN
     Route: 058
     Dates: start: 20231009
  2. SATRALIZUMAB [Suspect]
     Active Substance: SATRALIZUMAB
  3. SATRALIZUMAB [Suspect]
     Active Substance: SATRALIZUMAB

REACTIONS (7)
  - Pneumonia [Recovered/Resolved]
  - Gastrointestinal infection [Not Recovered/Not Resolved]
  - Influenza [Not Recovered/Not Resolved]
  - Diarrhoea [Not Recovered/Not Resolved]
  - Vertigo [Unknown]
  - Gait disturbance [Unknown]
  - Glaucoma [Unknown]

NARRATIVE: CASE EVENT DATE: 20240601
